FAERS Safety Report 7232512-X (Version None)
Quarter: 2011Q1

REPORT INFORMATION
  Report Type: 
  Country: None (occurrence: None)
  Receive Date: 20110105
  Receipt Date: 20101207
  Transmission Date: 20110831
  Serious: Yes (Death, Hospitalization, Other)
  Sender: FDA-Public Use
  Company Number: 20100571

PATIENT
  Age: 57 Year
  Sex: Male

DRUGS (5)
  1. OXYCODONE HCL [Concomitant]
  2. COTRIM [Concomitant]
  3. DEXAMETHASONE SODIUM PHOSPHATE [Suspect]
     Indication: CHEMOTHERAPY
  4. DEXAMETHASONE SODIUM PHOSPHATE [Suspect]
     Indication: OBLITERATIVE BRONCHIOLITIS
  5. FOLIC ACID [Concomitant]

REACTIONS (20)
  - ESCHERICHIA INFECTION [None]
  - GASTRIC DILATATION [None]
  - WEIGHT DECREASED [None]
  - DEHYDRATION [None]
  - HYPOALBUMINAEMIA [None]
  - STRONGYLOIDIASIS [None]
  - HYPERGLYCAEMIA [None]
  - RESPIRATORY FAILURE [None]
  - THROMBOCYTOPENIA [None]
  - MEDIASTINAL DISORDER [None]
  - MALNUTRITION [None]
  - HEPATIC FUNCTION ABNORMAL [None]
  - WHITE BLOOD CELL COUNT INCREASED [None]
  - HYPONATRAEMIA [None]
  - ILEUS PARALYTIC [None]
  - ORGANISING PNEUMONIA [None]
  - TACHYCARDIA [None]
  - METAMYELOCYTE COUNT INCREASED [None]
  - NORMOCHROMIC NORMOCYTIC ANAEMIA [None]
  - BLOOD CULTURE POSITIVE [None]
